FAERS Safety Report 8829374 (Version 1)
Quarter: 2012Q4

REPORT INFORMATION
  Report Type: Report from Study
  Country: JP (occurrence: JP)
  Receive Date: 20121008
  Receipt Date: 20121008
  Transmission Date: 20130627
  Serious: Yes (Other)
  Sender: FDA-Public Use
  Company Number: JP-VERTEX PHARMACEUTICAL INC.-2012-022180

PATIENT
  Age: 49 Year
  Sex: Male

DRUGS (11)
  1. VX-950 [Suspect]
     Indication: HEPATITIS C
     Dosage: 2250 mg, qd
     Route: 048
     Dates: start: 20120403, end: 20120626
  2. REBETOL [Suspect]
     Indication: HEPATITIS C
     Dosage: 800 mg, qd
     Route: 048
     Dates: start: 20120403, end: 20120723
  3. REBETOL [Suspect]
     Dosage: 400 mg, qd
     Route: 048
     Dates: start: 20120724, end: 20120813
  4. REBETOL [Suspect]
     Dosage: 800 mg, qd
     Route: 048
     Dates: start: 20120814
  5. PEGINTRON                          /01543001/ [Suspect]
     Indication: HEPATITIS C
     Dosage: 1.5 ?g/kg, UNK
     Route: 058
     Dates: start: 20120403
  6. FERO GRADUMET [Suspect]
     Indication: ADVERSE EVENT
     Dosage: 210 mg, qd
     Route: 048
     Dates: start: 20120703
  7. ZYLORIC [Concomitant]
     Dosage: 100 mg, qd
     Route: 048
     Dates: start: 20120404, end: 20120416
  8. ZYLORIC [Concomitant]
     Dosage: 200 mg, qd
     Route: 048
     Dates: start: 20120417
  9. PONTAL [Concomitant]
     Dosage: 250 mg, prn
     Route: 048
     Dates: start: 20120404
  10. MUCOSTA [Concomitant]
     Dosage: 100 mg, prn
     Route: 048
     Dates: start: 20120404
  11. CELESTAMINE                        /00252801/ [Concomitant]
     Dosage: 2 DF, qd
     Route: 048
     Dates: start: 20120406

REACTIONS (1)
  - Haemoglobin decreased [Recovered/Resolved]
